APPROVED DRUG PRODUCT: MICROGESTIN 1.5/30
Active Ingredient: ETHINYL ESTRADIOL; NORETHINDRONE ACETATE
Strength: 0.03MG;1.5MG
Dosage Form/Route: TABLET;ORAL-21
Application: A075548 | Product #002
Applicant: DR REDDYS LABORATORIES SA
Approved: Jul 30, 2003 | RLD: No | RS: No | Type: DISCN